FAERS Safety Report 21240691 (Version 20)
Quarter: 2025Q1

REPORT INFORMATION
  Report Type: Report from Study
  Country: US (occurrence: US)
  Receive Date: 20220823
  Receipt Date: 20250228
  Transmission Date: 20250408
  Serious: Yes (Other)
  Sender: TAKEDA
  Company Number: US-TAKEDA-2021TUS030376

PATIENT
  Sex: Female
  Weight: 77 kg

DRUGS (27)
  1. HUMAN IMMUNOGLOBULIN G [Suspect]
     Active Substance: HUMAN IMMUNOGLOBULIN G
     Indication: Primary immunodeficiency syndrome
     Dosage: 30 GRAM, Q4WEEKS
     Dates: start: 20160513
  2. HUMAN IMMUNOGLOBULIN G [Suspect]
     Active Substance: HUMAN IMMUNOGLOBULIN G
     Indication: Immunodeficiency common variable
  3. HUMAN IMMUNOGLOBULIN G [Suspect]
     Active Substance: HUMAN IMMUNOGLOBULIN G
     Dosage: 15 GRAM, Q4WEEKS
  4. HUMAN IMMUNOGLOBULIN G [Suspect]
     Active Substance: HUMAN IMMUNOGLOBULIN G
     Dosage: 20 GRAM, Q4WEEKS
  5. HUMAN IMMUNOGLOBULIN G [Suspect]
     Active Substance: HUMAN IMMUNOGLOBULIN G
     Dosage: 30 GRAM, Q4WEEKS
  6. MOUNJARO [Suspect]
     Active Substance: TIRZEPATIDE
     Indication: Product used for unknown indication
  7. DIPHENHYDRAMINE [Concomitant]
     Active Substance: DIPHENHYDRAMINE
  8. PREDNISONE [Concomitant]
     Active Substance: PREDNISONE
  9. ACYCLOVIR [Concomitant]
     Active Substance: ACYCLOVIR
  10. SODIUM CHLORIDE [Concomitant]
     Active Substance: SODIUM CHLORIDE
  11. EPINEPHRINE [Concomitant]
     Active Substance: EPINEPHRINE
  12. VITAMIN D3 [Concomitant]
     Active Substance: CHOLECALCIFEROL
  13. NITRIC ACID [Concomitant]
     Active Substance: NITRIC ACID
  14. ACETAMINOPHEN [Concomitant]
     Active Substance: ACETAMINOPHEN
  15. BORON [Concomitant]
     Active Substance: BORON
  16. ESCITALOPRAM [Concomitant]
     Active Substance: ESCITALOPRAM OXALATE
  17. PROTONIX [Concomitant]
     Active Substance: PANTOPRAZOLE SODIUM
  18. HYDROCHLOROTHIAZIDE [Concomitant]
     Active Substance: HYDROCHLOROTHIAZIDE
  19. XYZAL [Concomitant]
     Active Substance: LEVOCETIRIZINE DIHYDROCHLORIDE
  20. LIDOCAINE [Concomitant]
     Active Substance: LIDOCAINE
  21. HEPARIN [Concomitant]
     Active Substance: HEPARIN SODIUM
  22. C 1000 [Concomitant]
  23. DEXILANT [Concomitant]
     Active Substance: DEXLANSOPRAZOLE
  24. Omega [Concomitant]
  25. MUCINEX [Concomitant]
     Active Substance: GUAIFENESIN
  26. DIPHENHYDRAMINE HYDROCHLORIDE [Concomitant]
     Active Substance: DIPHENHYDRAMINE HYDROCHLORIDE
  27. DIETARY SUPPLEMENT [Concomitant]
     Active Substance: DIETARY SUPPLEMENT

REACTIONS (23)
  - Myocardial infarction [Unknown]
  - Gastroenteritis viral [Unknown]
  - Infection [Unknown]
  - Drug intolerance [Unknown]
  - Food poisoning [Unknown]
  - Acute sinusitis [Unknown]
  - Insurance issue [Unknown]
  - Multiple allergies [Not Recovered/Not Resolved]
  - Drug hypersensitivity [Unknown]
  - Pancreatic enlargement [Unknown]
  - Product use issue [Unknown]
  - Tooth infection [Not Recovered/Not Resolved]
  - Obstruction [Unknown]
  - Sinus disorder [Not Recovered/Not Resolved]
  - Bronchitis [Not Recovered/Not Resolved]
  - Sinusitis [Not Recovered/Not Resolved]
  - Blood pressure increased [Unknown]
  - Cough [Unknown]
  - Hypersensitivity [Unknown]
  - Pyrexia [Unknown]
  - Chronic sinusitis [Unknown]
  - Inappropriate schedule of product administration [Unknown]
  - Product dose omission issue [Unknown]
